FAERS Safety Report 8244090-7 (Version None)
Quarter: 2012Q1

REPORT INFORMATION
  Report Type: 
  Country: None (occurrence: None)
  Receive Date: 20120329
  Receipt Date: 20120321
  Transmission Date: 20120608
  Serious: Yes (Other)
  Sender: FDA-Public Use
  Company Number: RU-BRISTOL-MYERS SQUIBB COMPANY-16470387

PATIENT
  Age: 34 Year
  Sex: Male

DRUGS (2)
  1. COMBIVIR [Suspect]
  2. ATAZANAVIR [Suspect]

REACTIONS (1)
  - ANAEMIA [None]
